FAERS Safety Report 8117769-5 (Version None)
Quarter: 2011Q4

REPORT INFORMATION
  Report Type: 
  Country: None (occurrence: None)
  Receive Date: 20111227
  Receipt Date: 20111104
  Transmission Date: 20120403
  Serious: No
  Sender: FDA-Public Use
  Company Number: PHEH2011US07666

PATIENT
  Age: 53 Year
  Sex: Female
  Weight: 65.8 kg

DRUGS (12)
  1. RITALIN [Concomitant]
  2. METOCLOPRAM (METOCLOPRAMIDE HYDROCHLORIDE) [Concomitant]
  3. KLONOPIN [Concomitant]
  4. MAXALT-MLT (RIZATRIPTAN BENZOATE) [Concomitant]
  5. PROZAC [Concomitant]
  6. MORPHINE SULFATE INJ [Concomitant]
  7. BACLOFEN [Concomitant]
  8. VITAMIN D [Concomitant]
  9. PROMETHAZINE [Concomitant]
  10. GILENYA [Suspect]
     Dosage: 0.5 MG, DAILY, ORAL
     Route: 048
  11. BOTOX (BOTULINUM TOXIN TYPE A) [Concomitant]
  12. TOPAMAX [Concomitant]

REACTIONS (6)
  - FATIGUE [None]
  - INFLUENZA LIKE ILLNESS [None]
  - PAIN [None]
  - HYPERSOMNIA [None]
  - NAUSEA [None]
  - ALOPECIA [None]
